FAERS Safety Report 10448100 (Version 5)
Quarter: 2015Q4

REPORT INFORMATION
  Report Type: Spontaneous
  Country: US (occurrence: US)
  Receive Date: 20140911
  Receipt Date: 20151105
  Transmission Date: 20160304
  Serious: Yes (Hospitalization, Other)
  Sender: FDA-Public Use
  Company Number: US-009507513-1409USA003580

PATIENT
  Sex: Female

DRUGS (2)
  1. FOSAMAX [Suspect]
     Active Substance: ALENDRONATE SODIUM
     Indication: OSTEOPOROSIS
     Dosage: UNK
     Route: 048
     Dates: start: 1999
  2. FOSAMAX [Suspect]
     Active Substance: ALENDRONATE SODIUM
     Dosage: 70 MG, QW
     Route: 048
     Dates: end: 200907

REACTIONS (28)
  - Chronic obstructive pulmonary disease [Unknown]
  - Femur fracture [Unknown]
  - Cataract operation [Unknown]
  - Skin ulcer [Unknown]
  - Gastrooesophageal reflux disease [Unknown]
  - Pain in extremity [Unknown]
  - Pain in extremity [Unknown]
  - Wrist fracture [Unknown]
  - Fall [Unknown]
  - Wrist surgery [Unknown]
  - Hypokalaemia [Unknown]
  - Vitamin D deficiency [Unknown]
  - Chronic obstructive pulmonary disease [Unknown]
  - Hysterectomy [Unknown]
  - Spinal compression fracture [Not Recovered/Not Resolved]
  - Spinal fracture [Unknown]
  - Hyperglycaemia [Unknown]
  - Appendicectomy [Unknown]
  - Rib fracture [Unknown]
  - Fall [Unknown]
  - Pneumonia [Unknown]
  - Anxiety [Unknown]
  - Dementia [Unknown]
  - Fall [Unknown]
  - Arthralgia [Unknown]
  - Acute respiratory failure [Unknown]
  - Femur fracture [Unknown]
  - Hypothyroidism [Unknown]

NARRATIVE: CASE EVENT DATE: 2000
